FAERS Safety Report 8243954-8 (Version None)
Quarter: 2012Q1

REPORT INFORMATION
  Report Type: 
  Country: None (occurrence: None)
  Receive Date: 20120329
  Receipt Date: 20110919
  Transmission Date: 20120608
  Serious: No
  Sender: FDA-Public Use
  Company Number: US-MYLANLABS-2011S1019806

PATIENT
  Age: 50 Year
  Sex: Female

DRUGS (4)
  1. ESTRADIOL [Suspect]
     Dosage: CHANGED QW
     Route: 062
     Dates: start: 20110701
  2. ESTRADIOL [Suspect]
     Indication: HORMONE REPLACEMENT THERAPY
     Dosage: CHANGED QW
     Route: 062
     Dates: start: 20110101, end: 20110501
  3. PROGESTERONE [Concomitant]
     Indication: HORMONE REPLACEMENT THERAPY
     Route: 048
  4. PROTONIX [Concomitant]
     Indication: GASTROOESOPHAGEAL REFLUX DISEASE
     Route: 048

REACTIONS (2)
  - APPLICATION SITE RASH [None]
  - APPLICATION SITE ERYTHEMA [None]
